FAERS Safety Report 22088500 (Version 3)
Quarter: 2023Q2

REPORT INFORMATION
  Report Type: Spontaneous
  Country: PL (occurrence: PL)
  Receive Date: 20230313
  Receipt Date: 20230403
  Transmission Date: 20230722
  Serious: Yes (Hospitalization, Other)
  Sender: FDA-Public Use
  Company Number: PL-Gedeon Richter Plc.-2023_GR_001646

PATIENT
  Age: 64 Year
  Sex: Female

DRUGS (8)
  1. PAROXETINE [Interacting]
     Active Substance: PAROXETINE
     Indication: Depression
     Dosage: 20 MILLIGRAM, ONCE A DAY (20 MG/DAY)
     Route: 065
  2. ZOLPIDEM [Suspect]
     Active Substance: ZOLPIDEM TARTRATE
     Indication: Sleep disorder
     Dosage: 10 MILLIGRAM, ONCE A DAY (10 MG, HS (30 MINUTES BEFORE BEDTIME) )
     Route: 065
  3. DOXYLAMINE SUCCINATE [Interacting]
     Active Substance: DOXYLAMINE SUCCINATE
     Indication: Depression
     Dosage: 25 MILLIGRAM, ONCE A DAY (25 MG, HS (30 MINUTES BEFORE THE PLANNED BEDTIME) )
     Route: 065
  4. DOXYLAMINE SUCCINATE [Interacting]
     Active Substance: DOXYLAMINE SUCCINATE
     Indication: Insomnia
  5. OMEPRAZOLE [Interacting]
     Active Substance: OMEPRAZOLE
     Indication: Atrial fibrillation
     Dosage: 40 MILLIGRAM, ONCE A DAY (40 MG/DAY)
     Route: 065
  6. PROPAFENONE [Interacting]
     Active Substance: PROPAFENONE
     Indication: Atrial fibrillation
     Dosage: 450 MILLIGRAM, ONCE A DAY (450 MG/DAY)
     Route: 065
  7. METOPROLOL [Concomitant]
     Active Substance: METOPROLOL
     Indication: Atrial fibrillation
     Dosage: 100 MILLIGRAM, ONCE A DAY (100 MG/DAY)
     Route: 065
  8. RIVAROXABAN [Concomitant]
     Active Substance: RIVAROXABAN
     Indication: Atrial fibrillation
     Dosage: 20 MILLIGRAM, ONCE A DAY (20 MG/DAY)
     Route: 065

REACTIONS (6)
  - Acute kidney injury [Unknown]
  - Drug interaction [Unknown]
  - Chromaturia [Unknown]
  - Myalgia [Unknown]
  - Rhabdomyolysis [Unknown]
  - Nightmare [Unknown]
